FAERS Safety Report 4652361-6 (Version None)
Quarter: 2005Q2

REPORT INFORMATION
  Report Type: 
  Country: None (occurrence: None)
  Receive Date: 20050504
  Receipt Date: 20050430
  Transmission Date: 20051028
  Serious: Yes (Other)
  Sender: FDA-Public Use
  Company Number: PHBS2005CH06219

PATIENT
  Sex: Male

DRUGS (1)
  1. TORECAN [Suspect]
     Indication: VERTIGO POSITIONAL
     Dosage: 6.5 MG, TID
     Route: 048

REACTIONS (2)
  - MOVEMENT DISORDER [None]
  - PARKINSONIAN CRISIS [None]
